FAERS Safety Report 6716457-7 (Version None)
Quarter: 2010Q2

REPORT INFORMATION
  Report Type: 
  Country: None (occurrence: None)
  Receive Date: 20100507
  Receipt Date: 20100505
  Transmission Date: 20101027
  Serious: Yes (Other)
  Sender: FDA-Public Use
  Company Number: US-ROXANE LABORATORIES, INC.-2010-RO-00531RO

PATIENT
  Age: 22 Year
  Sex: Male

DRUGS (2)
  1. HYDROMORPHONE HCL [Suspect]
     Indication: PAIN
     Route: 042
  2. TERBUTALINE SULFATE [Suspect]
     Route: 058

REACTIONS (1)
  - DRUG INEFFECTIVE [None]
